FAERS Safety Report 5208824-8 (Version None)
Quarter: 2006Q4

REPORT INFORMATION
  Report Type: 
  Country: None (occurrence: None)
  Receive Date: 20061101
  Receipt Date: 20060718
  Transmission Date: 20070319
  Serious: No
  Sender: FDA-Public Use
  Company Number: 2006PV017741

PATIENT
  Age: 55 Year
  Sex: Female

DRUGS (4)
  1. SYMLIN [Suspect]
     Indication: GLUCOSE TOLERANCE IMPAIRED
     Dosage: 120 MCG;TID;SC
     Route: 058
     Dates: start: 20050401
  2. GLUCOPHAGE [Concomitant]
  3. SYNTHROID [Concomitant]
  4. BLOOD PRESSURE MEDICATION [Concomitant]

REACTIONS (1)
  - THERAPEUTIC RESPONSE UNEXPECTED [None]
